FAERS Safety Report 6664200-2 (Version None)
Quarter: 2010Q2

REPORT INFORMATION
  Report Type: 
  Country: None (occurrence: None)
  Receive Date: 20100401
  Receipt Date: 20100322
  Transmission Date: 20101027
  Serious: Yes (Other)
  Sender: FDA-Public Use
  Company Number: CA-PFIZER INC-2010003662

PATIENT
  Age: 58 Year
  Sex: Male
  Weight: 90.703 kg

DRUGS (3)
  1. LYRICA [Suspect]
     Indication: PAIN
     Dosage: 75 MG, 2X/DAY
     Route: 048
     Dates: start: 20090101
  2. NAPROXEN [Concomitant]
  3. SINEMET [Concomitant]

REACTIONS (1)
  - MOOD SWINGS [None]
